FAERS Safety Report 8119667-X (Version None)
Quarter: 2012Q1

REPORT INFORMATION
  Report Type: 
  Country: None (occurrence: None)
  Receive Date: 20120207
  Receipt Date: 20120131
  Transmission Date: 20120608
  Serious: Yes (Hospitalization, Other)
  Sender: FDA-Public Use
  Company Number: FR-MERCK-1202USA00571

PATIENT
  Age: 14 Year
  Sex: Female

DRUGS (12)
  1. CANCIDAS [Suspect]
     Indication: ASPERGILLOSIS
     Route: 041
     Dates: start: 20110913, end: 20110922
  2. RIMIFON [Concomitant]
     Indication: TUBERCULOSIS
     Route: 065
     Dates: start: 20110901
  3. VFEND [Suspect]
     Indication: BRONCHOPULMONARY ASPERGILLOSIS
     Route: 048
     Dates: start: 20110912, end: 20110928
  4. TACROLIMUS [Suspect]
     Route: 048
     Dates: start: 20110916
  5. ZITHROMAX [Suspect]
     Route: 048
     Dates: start: 20110912
  6. TACROLIMUS [Suspect]
     Indication: LUNG TRANSPLANT
     Route: 048
     Dates: start: 20110912, end: 20110915
  7. TACROLIMUS [Suspect]
     Route: 048
     Dates: start: 20111006
  8. ZITHROMAX [Suspect]
     Indication: OPPORTUNISTIC INFECTION PROPHYLAXIS
     Route: 048
     Dates: start: 20110101
  9. RIFADIN [Suspect]
     Indication: PULMONARY TUBERCULOSIS
     Route: 048
     Dates: start: 20110608, end: 20111009
  10. TACROLIMUS [Suspect]
     Route: 048
     Dates: start: 20110921
  11. CREON [Concomitant]
     Route: 065
  12. MYCOPHENOLATE MOFETIL (CELLCEPT) [Concomitant]
     Indication: LUNG TRANSPLANT
     Route: 065
     Dates: start: 20051020

REACTIONS (4)
  - DRUG LEVEL INCREASED [None]
  - CYTOLYTIC HEPATITIS [None]
  - DRUG INTERACTION [None]
  - RENAL FAILURE [None]
